FAERS Safety Report 5142961-1 (Version None)
Quarter: 2006Q4

REPORT INFORMATION
  Report Type: 
  Country: None (occurrence: None)
  Receive Date: 20061103
  Receipt Date: 20061024
  Transmission Date: 20070319
  Serious: Yes (Hospitalization)
  Sender: FDA-Public Use
  Company Number: US-JNJFOC-20060806201

PATIENT
  Sex: Female
  Weight: 56 kg

DRUGS (7)
  1. REMICADE [Suspect]
     Route: 042
  2. REMICADE [Suspect]
     Route: 042
  3. REMICADE [Suspect]
     Route: 042
  4. REMICADE [Suspect]
     Indication: BEHCET'S SYNDROME
     Dosage: 4 INFUSIONS
     Route: 042
  5. PREDNISONE TAB [Concomitant]
     Indication: BEHCET'S SYNDROME
     Dosage: VARIABLE DOSE
  6. COLCHICINE [Concomitant]
     Indication: BEHCET'S SYNDROME
  7. IMURAN [Concomitant]
     Indication: BEHCET'S SYNDROME

REACTIONS (2)
  - LEUKAEMIA [None]
  - PANCYTOPENIA [None]
